FAERS Safety Report 4350220-X (Version None)
Quarter: 2004Q2

REPORT INFORMATION
  Report Type: 
  Country: None (occurrence: None)
  Receive Date: 20040428
  Receipt Date: 20040419
  Transmission Date: 20050107
  Serious: No
  Sender: FDA-Public Use
  Company Number: DEWYE596523FEB04

PATIENT
  Age: 29 Year
  Sex: Female

DRUGS (2)
  1. TREVILOR (VENLAFAXINE HYDROCHLORIDE, UNSPEC, 0) [Suspect]
  2. ALCOHOL (ETHANOL,  , 0) [Suspect]

REACTIONS (3)
  - ALCOHOL INTERACTION [None]
  - ALCOHOL POISONING [None]
  - DRUG TOXICITY [None]
